FAERS Safety Report 13183505 (Version 1)
Quarter: 2017Q1

REPORT INFORMATION
  Report Type: Spontaneous
  Country: GB (occurrence: GB)
  Receive Date: 20170203
  Receipt Date: 20170203
  Transmission Date: 20170428
  Serious: Yes (Death, Hospitalization, Other)
  Sender: FDA-Public Use
  Company Number: GB-TEVA-734575ACC

PATIENT

DRUGS (24)
  1. CYCLOSPORINE. [Suspect]
     Active Substance: CYCLOSPORINE
     Indication: GRAFT VERSUS HOST DISEASE
     Route: 065
  2. ETANERCEPT [Concomitant]
     Active Substance: ETANERCEPT
     Indication: IDIOPATHIC PULMONARY FIBROSIS
     Route: 065
     Dates: start: 20160916
  3. ETANERCEPT [Concomitant]
     Active Substance: ETANERCEPT
     Route: 065
     Dates: start: 20160922
  4. TEICOPLANIN [Concomitant]
     Active Substance: TEICOPLANIN
     Indication: PRODUCT USED FOR UNKNOWN INDICATION
     Route: 065
  5. AMIKACIN [Concomitant]
     Active Substance: AMIKACIN
     Indication: PRODUCT USED FOR UNKNOWN INDICATION
     Route: 065
  6. ETANERCEPT [Concomitant]
     Active Substance: ETANERCEPT
     Route: 065
     Dates: start: 20160919
  7. MYCOPHENOLATE MOFETIL. [Concomitant]
     Active Substance: MYCOPHENOLATE MOFETIL
     Indication: GRAFT VERSUS HOST DISEASE
     Route: 065
  8. METHYLPREDNISOLONE. [Concomitant]
     Active Substance: METHYLPREDNISOLONE
     Route: 065
     Dates: start: 20160825
  9. SOLIRIS [Suspect]
     Active Substance: ECULIZUMAB
     Indication: OFF LABEL USE
  10. MOXIFLOXACIN. [Concomitant]
     Active Substance: MOXIFLOXACIN
     Indication: PRODUCT USED FOR UNKNOWN INDICATION
     Route: 065
  11. VANCOMYCIN [Concomitant]
     Active Substance: VANCOMYCIN
     Indication: PRODUCT USED FOR UNKNOWN INDICATION
     Route: 065
  12. CIPROFLOXACIN. [Concomitant]
     Active Substance: CIPROFLOXACIN
     Indication: PRODUCT USED FOR UNKNOWN INDICATION
     Route: 065
  13. MICAFUNGIN [Concomitant]
     Active Substance: MICAFUNGIN
     Indication: PRODUCT USED FOR UNKNOWN INDICATION
     Route: 065
  14. OXYGEN. [Concomitant]
     Active Substance: OXYGEN
     Route: 045
     Dates: start: 20160909
  15. VORICONAZOLE. [Concomitant]
     Active Substance: VORICONAZOLE
     Indication: PRODUCT USED FOR UNKNOWN INDICATION
     Route: 042
  16. SOLIRIS [Suspect]
     Active Substance: ECULIZUMAB
     Indication: THROMBOTIC MICROANGIOPATHY
     Dosage: 600 MILLIGRAM DAILY;
     Route: 042
     Dates: start: 20160924
  17. AMBISOME [Concomitant]
     Active Substance: AMPHOTERICIN B
     Indication: PRODUCT USED FOR UNKNOWN INDICATION
     Route: 065
  18. OXYGEN. [Concomitant]
     Active Substance: OXYGEN
     Route: 045
  19. CLARITHROMYCIN. [Concomitant]
     Active Substance: CLARITHROMYCIN
     Indication: PRODUCT USED FOR UNKNOWN INDICATION
     Route: 065
  20. MEROPENEM. [Concomitant]
     Active Substance: MEROPENEM
     Indication: PRODUCT USED FOR UNKNOWN INDICATION
     Route: 065
  21. METHYLPREDNISOLONE. [Concomitant]
     Active Substance: METHYLPREDNISOLONE
     Indication: PRODUCT USED FOR UNKNOWN INDICATION
     Route: 065
     Dates: start: 20160810
  22. METHYLPREDNISOLONE. [Concomitant]
     Active Substance: METHYLPREDNISOLONE
     Route: 065
     Dates: start: 20160925, end: 20160927
  23. OXYGEN. [Concomitant]
     Active Substance: OXYGEN
     Indication: DYSPNOEA
     Dosage: FACEMASK
     Route: 045
  24. OXYGEN. [Concomitant]
     Active Substance: OXYGEN
     Route: 045

REACTIONS (7)
  - Atypical mycobacterial infection [Unknown]
  - Hypotension [Unknown]
  - Lung disorder [Unknown]
  - Haemodynamic instability [Unknown]
  - Gastrointestinal haemorrhage [Unknown]
  - Idiopathic pneumonia syndrome [Fatal]
  - Renal impairment [Not Recovered/Not Resolved]

NARRATIVE: CASE EVENT DATE: 20160924
